FAERS Safety Report 8733004 (Version 2)
Quarter: 2012Q4

REPORT INFORMATION
  Report Type: 
  Country: US (occurrence: US)
  Receive Date: 20120820
  Receipt Date: 20120913
  Transmission Date: 20130627
  Serious: Yes (Other)
  Sender: FDA-Public Use
  Company Number: CHPA2012US017950

PATIENT
  Sex: Female

DRUGS (4)
  1. EXCEDRIN MIGRAINE [Suspect]
     Indication: MIGRAINE
     Dosage: UNK, UNK
     Route: 048
     Dates: start: 2006, end: 2006
  2. EXCEDRIN MIGRAINE [Suspect]
     Indication: MIGRAINE
     Dosage: 2 DF, QD
     Route: 048
     Dates: start: 2006
  3. ANTIBIOTICS [Suspect]
     Dosage: UNK, UNK
     Dates: start: 2006, end: 2006
  4. ANTIBIOTICS [Suspect]
     Dosage: UNK (only took one dose)
     Dates: start: 2008, end: 2008

REACTIONS (8)
  - Obstructive airways disorder [Recovered/Resolved]
  - Dyspnoea [Recovered/Resolved]
  - Hypersensitivity [Recovered/Resolved]
  - Pruritus [Recovered/Resolved]
  - Rash [Recovered/Resolved]
  - Urticaria [Recovered/Resolved]
  - Pruritus generalised [None]
  - Reaction to drug excipients [None]
